FAERS Safety Report 12383871 (Version 1)
Quarter: 2016Q2

REPORT INFORMATION
  Report Type: Spontaneous
  Country: US (occurrence: US)
  Receive Date: 20160519
  Receipt Date: 20160519
  Transmission Date: 20160815
  Serious: Yes (Hospitalization, Other)
  Sender: FDA-Public Use
  Company Number: US-BAUSCH-BL-2016-011166

PATIENT
  Age: 48 Year
  Sex: Male

DRUGS (5)
  1. CLONZAPEAM [Suspect]
     Active Substance: CLONAZEPAM
     Indication: MUSCLE SPASMS
     Route: 065
  2. LORAZEPAM. [Suspect]
     Active Substance: LORAZEPAM
     Indication: MUSCLE SPASMS
     Dosage: 1015 MG AS NEEDED
     Route: 042
  3. BACLOFEN. [Suspect]
     Active Substance: BACLOFEN
     Indication: MUSCLE SPASMS
     Route: 065
  4. DANTROLENE [Suspect]
     Active Substance: DANTROLENE
     Indication: MUSCLE SPASMS
     Dosage: 25 (UNSPECIFIED UNITS) DAILY
     Route: 065
  5. TIZANIDINE. [Suspect]
     Active Substance: TIZANIDINE
     Indication: MUSCLE SPASMS
     Route: 065

REACTIONS (3)
  - Dystonia [Recovered/Resolved]
  - Apnoea [Recovered/Resolved]
  - Drug ineffective [Unknown]
